FAERS Safety Report 7701426-0 (Version None)
Quarter: 2011Q3

REPORT INFORMATION
  Report Type: 
  Country: None (occurrence: None)
  Receive Date: 20110822
  Receipt Date: 20110815
  Transmission Date: 20111222
  Serious: Yes (Hospitalization)
  Sender: FDA-Public Use
  Company Number: US-B.I. PHARMACEUTICALS,INC./RIDGEFIELD-2011-BP-18496BP

PATIENT
  Age: 68 Year
  Sex: Female
  Weight: 48.99 kg

DRUGS (7)
  1. LIPITOR [Concomitant]
     Dosage: 20 MG
  2. ACTONEL [Concomitant]
     Dosage: 150 MG
  3. DIGOXIN [Concomitant]
     Dosage: 0.125 MG
  4. PRADAXA [Suspect]
     Indication: ATRIAL FIBRILLATION
     Dosage: 300 MG
     Route: 048
     Dates: start: 20110526
  5. CALCIUM CARBONATE [Concomitant]
     Dosage: 1000 MG
  6. CELEBREX [Concomitant]
     Indication: ARTHRALGIA
     Dosage: 200 MG
  7. VITAMIN D [Concomitant]
     Dosage: 2000 U

REACTIONS (2)
  - ATRIAL FIBRILLATION [None]
  - CEREBRAL INFARCTION [None]
